FAERS Safety Report 21835280 (Version 1)
Quarter: 2023Q1

REPORT INFORMATION
  Report Type: Spontaneous
  Country: FI (occurrence: FI)
  Receive Date: 20230109
  Receipt Date: 20230109
  Transmission Date: 20230418
  Serious: Yes (Hospitalization)
  Sender: FDA-Public Use
  Company Number: None

PATIENT
  Age: 48 Year
  Sex: Female

DRUGS (3)
  1. BRINTELLIX [VORTIOXETINE HYDROBROMIDE] [Concomitant]
     Indication: Depression
     Dosage: 10 MG, QD
     Route: 048
     Dates: start: 2021
  2. FELODIPINE [Concomitant]
     Active Substance: FELODIPINE
     Indication: Hypertension
     Dosage: 2.5 MG, QD
     Route: 048
     Dates: start: 20220901
  3. OZEMPIC [Suspect]
     Active Substance: SEMAGLUTIDE
     Indication: Weight control
     Dosage: UNK
     Dates: start: 202209, end: 20221205

REACTIONS (6)
  - Biliary colic [Recovering/Resolving]
  - Gallbladder operation [Recovering/Resolving]
  - Hepatic enzyme increased [Recovering/Resolving]
  - Pancreatitis [Recovering/Resolving]
  - Amylase increased [Recovering/Resolving]
  - Off label use [Recovering/Resolving]

NARRATIVE: CASE EVENT DATE: 20221204
